FAERS Safety Report 7386633-1 (Version None)
Quarter: 2011Q1

REPORT INFORMATION
  Report Type: 
  Country: None (occurrence: None)
  Receive Date: 20110329
  Receipt Date: 20110329
  Transmission Date: 20110831
  Serious: No
  Sender: FDA-Public Use
  Company Number: None

PATIENT
  Age: 76 Year
  Sex: Male

DRUGS (1)
  1. LEVAQUIN [Suspect]
     Indication: JOINT INJURY
     Dosage: 750MG ONCE A DAY PO
     Route: 048
     Dates: start: 20110316

REACTIONS (1)
  - FATIGUE [None]
